FAERS Safety Report 23450798 (Version 7)
Quarter: 2024Q1

REPORT INFORMATION
  Report Type: Spontaneous
  Country: US (occurrence: US)
  Receive Date: 20240129
  Receipt Date: 20240313
  Transmission Date: 20240409
  Serious: No
  Sender: FDA-Public Use
  Company Number: US-PFIZER INC-PV202400003909

PATIENT
  Age: 75 Year
  Sex: Male
  Weight: 117.93 kg

DRUGS (10)
  1. GENOTROPIN [Suspect]
     Active Substance: SOMATROPIN
     Dosage: 0.3, ONCE A DAY
     Dates: start: 202309
  2. HYDROCORTISONE [Concomitant]
     Active Substance: HYDROCORTISONE
     Dosage: 2 TABLETS MORNING, 2 TWO TABLETS NIGHT
  3. IRBESARTAN [Concomitant]
     Active Substance: IRBESARTAN
     Dosage: 150-12.5MILLIGARM ONE A DAY
  4. AMLODIPINE [Concomitant]
     Active Substance: AMLODIPINE BESYLATE
     Dosage: 2.5MILLIGRAM ONCE A DAY
  5. METFORMIN [Concomitant]
     Active Substance: METFORMIN HYDROCHLORIDE
     Dosage: 500MILLIGRAM ONE A DAY
  6. ATORVASTATIN [Concomitant]
     Active Substance: ATORVASTATIN
     Dosage: 20MILLIGRAM ONE A DAY
  7. FINASTERIDE [Concomitant]
     Active Substance: FINASTERIDE
     Dosage: 5MILLIGRAM ONE A DAY
  8. LEVOTHYROXINE [Concomitant]
     Active Substance: LEVOTHYROXINE\LEVOTHYROXINE SODIUM
     Dosage: 75MCG ONE A DAY
  9. LIOTHYRONINE [Concomitant]
     Active Substance: LIOTHYRONINE
     Dosage: 5MCG ONCE A DAY
  10. OMEPRAZOLE [Concomitant]
     Active Substance: OMEPRAZOLE
     Dosage: 20MG ONCE A DAY

REACTIONS (5)
  - Off label use [Unknown]
  - Device mechanical issue [Unknown]
  - Accidental exposure to product [Unknown]
  - Exposure via skin contact [Unknown]
  - Device use issue [Unknown]
